FAERS Safety Report 4788630-9 (Version None)
Quarter: 2005Q4

REPORT INFORMATION
  Report Type: 
  Country: None (occurrence: None)
  Receive Date: 20051005
  Receipt Date: 20051003
  Transmission Date: 20060501
  Serious: Yes (Other)
  Sender: FDA-Public Use
  Company Number: US-GLAXOSMITHKLINE-A0576725A

PATIENT
  Age: 25 Year
  Sex: Male

DRUGS (2)
  1. PAROXETINE HCL [Suspect]
     Indication: PANIC DISORDER
     Dosage: 20MG PER DAY
     Route: 048
  2. XANAX [Concomitant]

REACTIONS (4)
  - BURNING SENSATION [None]
  - CHEST PAIN [None]
  - HALLUCINATION [None]
  - HEART RATE INCREASED [None]
